FAERS Safety Report 8400563-5 (Version None)
Quarter: 2012Q2

REPORT INFORMATION
  Report Type: 
  Country: None (occurrence: None)
  Receive Date: 20120531
  Receipt Date: 20120525
  Transmission Date: 20120825
  Serious: Yes (Hospitalization, Other)
  Sender: FDA-Public Use
  Company Number: FR-PFIZER INC-2009US-28610

PATIENT
  Age: 71 Year
  Sex: Female

DRUGS (15)
  1. DAFLON [Concomitant]
     Dosage: UNK
     Route: 065
  2. METFORMIN HCL [Suspect]
     Indication: TYPE 2 DIABETES MELLITUS
     Dosage: 500 MG, TID, UNK
     Route: 048
     Dates: start: 20090822, end: 20090828
  3. HEPARIN [Suspect]
     Dosage: UNK
     Route: 065
     Dates: start: 20090821, end: 20090821
  4. VISIPAQUE [Suspect]
     Dosage: UNK
     Route: 042
     Dates: start: 20090821, end: 20090821
  5. EBASTINE [Concomitant]
     Dosage: UNK
     Route: 065
  6. LOPRAZOLAM MESILATE [Concomitant]
     Dosage: UNK
     Route: 065
  7. MACROGOL [Concomitant]
     Dosage: UNK
     Route: 065
  8. BETADINE [Suspect]
     Dosage: UNK
     Route: 065
     Dates: start: 20090821, end: 20090821
  9. REPAGLINIDE [Suspect]
     Dosage: 0.5 MG, TID , UNK
     Route: 048
     Dates: start: 20090822, end: 20090828
  10. ASPIRIN [Suspect]
     Dosage: 160.000000 MG, QD, UNK
     Route: 048
     Dates: start: 20090822
  11. CLOPIDOGREL BISULFATE [Suspect]
     Dosage: 75.000000 MG, QD, UNK
     Route: 048
     Dates: start: 20090822
  12. TOCOPHERYL ACETATE [Suspect]
     Dosage: UNK
     Route: 065
     Dates: start: 20090821, end: 20090821
  13. ISOPTIN [Suspect]
     Dosage: UNK
     Route: 065
     Dates: start: 20090821, end: 20090821
  14. SOLU-MEDROL [Suspect]
     Dosage: UNK
     Route: 065
     Dates: start: 20090821, end: 20090821
  15. AMLODIPINE BESYLATE [Suspect]
     Dosage: 10 MG, QD , UNK
     Route: 048
     Dates: start: 20090822

REACTIONS (5)
  - PRURITUS [None]
  - RASH MACULO-PAPULAR [None]
  - RASH ERYTHEMATOUS [None]
  - URTICARIA [None]
  - IDIOPATHIC URTICARIA [None]
